FAERS Safety Report 21121058 (Version 1)
Quarter: 2022Q3

REPORT INFORMATION
  Report Type: Spontaneous
  Country: US (occurrence: None)
  Receive Date: 20220722
  Receipt Date: 20220722
  Transmission Date: 20221027
  Serious: Yes (Hospitalization)
  Sender: FDA-Public Use
  Company Number: None

PATIENT
  Sex: Female

DRUGS (21)
  1. MYCOPHENOLIC ACID [Suspect]
     Active Substance: MYCOPHENOLIC ACID
     Indication: Heart transplant
     Dosage: TAKE 1 TABLET (180 MG) BY MOUTH TWICE DAILY
     Route: 048
     Dates: start: 20150717
  2. ALENDRONATE [Concomitant]
  3. ALLOPURINOL [Concomitant]
  4. AMLODIPINE [Concomitant]
  5. BUMETANIDE [Concomitant]
  6. CHLORTHALID [Concomitant]
  7. CREON [Concomitant]
     Active Substance: PANCRELIPASE AMYLASE\PANCRELIPASE LIPASE\PANCRELIPASE PROTEASE
  8. CYCLOSPORINE [Concomitant]
  9. ENVARSUS XR [Concomitant]
  10. ESCITALOPRAM [Concomitant]
  11. GABAPENTIN [Concomitant]
     Active Substance: GABAPENTIN
  12. GAVILYTE-N-SOL FLAV PK [Concomitant]
  13. HYDRALAZINE [Concomitant]
  14. LATANOPROST [Concomitant]
     Active Substance: LATANOPROST
  15. MAGNESIUM POW GLYCINAT [Concomitant]
  16. MYCOPHENOLIC [Concomitant]
  17. OLOPATADINE [Concomitant]
  18. OMEPRAZOLE [Concomitant]
  19. PREDNISONE [Concomitant]
  20. SODIUM CITRA GRA DIHYDRAT [Concomitant]
  21. VALGANCICLOV [Concomitant]

REACTIONS (1)
  - Fluid retention [None]
